FAERS Safety Report 4563679-X (Version None)
Quarter: 2005Q1

REPORT INFORMATION
  Report Type: 
  Country: None (occurrence: None)
  Receive Date: 20050125
  Receipt Date: 20040908
  Transmission Date: 20050727
  Serious: Yes (Other)
  Sender: FDA-Public Use
  Company Number: 2004061269

PATIENT
  Age: 34 Year
  Sex: Male

DRUGS (2)
  1. ZITHROMAC (IV) (AZITHROMYCIN) [Suspect]
     Indication: BACTERIAL INFECTION
     Dosage: (500 MG, 1 IN 1 D), INTRAMUSCULAR
     Route: 030
     Dates: start: 20040829, end: 20040829
  2. IBUPROFEN [Concomitant]

REACTIONS (7)
  - INJECTION SITE INDURATION [None]
  - INJECTION SITE PAIN [None]
  - MEDICATION ERROR [None]
  - MONOPLEGIA [None]
  - NAUSEA [None]
  - OEDEMA PERIPHERAL [None]
  - VOMITING [None]
